FAERS Safety Report 7672240-X (Version None)
Quarter: 2011Q3

REPORT INFORMATION
  Report Type: 
  Country: None (occurrence: None)
  Receive Date: 20110809
  Receipt Date: 20110805
  Transmission Date: 20111222
  Serious: Yes (Death, Hospitalization, Other)
  Sender: FDA-Public Use
  Company Number: PHHY2011JP13515

PATIENT
  Sex: Male
  Weight: 59 kg

DRUGS (8)
  1. GLEEVEC [Suspect]
     Indication: CHRONIC MYELOID LEUKAEMIA
     Dosage: 200 MG DAILY
     Route: 048
     Dates: start: 20100415, end: 20100602
  2. GLEEVEC [Suspect]
     Dosage: 300 MG DAILY
     Route: 048
     Dates: start: 20100603, end: 20110131
  3. TEGRETOL [Concomitant]
     Indication: EPILEPSY
     Dosage: 100 MG, UNK
     Route: 048
     Dates: start: 20040629, end: 20110131
  4. MAGNESIUM OXIDE [Concomitant]
     Indication: CONSTIPATION
     Dosage: 01 G, UNK
     Route: 048
     Dates: start: 20040629, end: 20110131
  5. LASIX [Concomitant]
     Dosage: 20 MG, UNK
     Route: 048
     Dates: start: 20100603, end: 20110131
  6. EPADEL S [Concomitant]
     Indication: HYPERLIPIDAEMIA
     Dosage: 1200 MG, UNK
     Route: 048
     Dates: start: 20050208, end: 20100429
  7. SELBEX [Concomitant]
     Dosage: 150 MG, UNK
     Route: 048
     Dates: start: 20100415, end: 20110131
  8. LIPITOR [Concomitant]
     Indication: HYPERLIPIDAEMIA
     Dosage: 05 MG, UNK
     Route: 048
     Dates: start: 20040629, end: 20110131

REACTIONS (9)
  - DIZZINESS [None]
  - DYSPNOEA EXERTIONAL [None]
  - CIRCULATORY COLLAPSE [None]
  - PNEUMONIA BACTERIAL [None]
  - OXYGEN SATURATION DECREASED [None]
  - AKINESIA [None]
  - MULTI-ORGAN FAILURE [None]
  - INTERSTITIAL LUNG DISEASE [None]
  - CONDITION AGGRAVATED [None]
